FAERS Safety Report 5396459-6 (Version None)
Quarter: 2007Q3

REPORT INFORMATION
  Report Type: 
  Country: None (occurrence: None)
  Receive Date: 20070725
  Receipt Date: 20070712
  Transmission Date: 20080115
  Serious: Yes (Hospitalization, Disabling, Other)
  Sender: FDA-Public Use
  Company Number: US-ELI_LILLY_AND_COMPANY-US200707003303

PATIENT
  Age: 61 Year
  Sex: Female

DRUGS (4)
  1. FORTEO [Suspect]
     Indication: OSTEOPOROSIS
     Dosage: UNK, UNK
     Dates: start: 20051201
  2. ASPIRIN [Concomitant]
  3. OXYGEN [Concomitant]
     Dosage: UNK, EACH EVENING
  4. CALCIUM CHLORIDE [Concomitant]

REACTIONS (15)
  - ABASIA [None]
  - EXOSTOSIS [None]
  - FALL [None]
  - GAIT DISTURBANCE [None]
  - HYPOAESTHESIA [None]
  - INTERVERTEBRAL DISC PROTRUSION [None]
  - MIGRAINE [None]
  - MUSCLE SPASMS [None]
  - MUSCULAR WEAKNESS [None]
  - PAIN [None]
  - PARALYSIS [None]
  - SCIATIC NERVE INJURY [None]
  - SPINAL COLUMN STENOSIS [None]
  - SPINAL CORD INJURY [None]
  - SPINAL FRACTURE [None]
